FAERS Safety Report 8925736 (Version 3)
Quarter: 2013Q2

REPORT INFORMATION
  Report Type: Spontaneous
  Country: JP (occurrence: JP)
  Receive Date: 20121126
  Receipt Date: 20130405
  Transmission Date: 20140414
  Serious: Yes (Hospitalization, Other)
  Sender: FDA-Public Use
  Company Number: JP-PFIZER INC-2012291663

PATIENT
  Age: 35 Year
  Sex: Male

DRUGS (2)
  1. HALCION [Suspect]
     Indication: DEPRESSION
     Route: 048
  2. MYSLEE [Concomitant]
     Route: 048

REACTIONS (2)
  - Road traffic accident [Recovered/Resolved]
  - Altered state of consciousness [Recovered/Resolved]
